FAERS Safety Report 4295996-5 (Version None)
Quarter: 2004Q1

REPORT INFORMATION
  Report Type: 
  Country: None (occurrence: None)
  Receive Date: 20040212
  Receipt Date: 20040203
  Transmission Date: 20041129
  Serious: Yes (Hospitalization, Other)
  Sender: FDA-Public Use
  Company Number: FRWYE553503FEB04

PATIENT
  Age: 35 Year
  Sex: Female

DRUGS (4)
  1. EFFEXOR [Suspect]
     Indication: DEPRESSION
     Dosage: 150 MG 1X PER 1 DAY
     Route: 048
     Dates: end: 20040101
  2. EFFEXOR [Suspect]
     Indication: DEPRESSION
     Dosage: 150 MG 1X PER 1 DAY
     Route: 048
     Dates: start: 20040101
  3. MODIODAL (MODAFINIL, , 0) [Suspect]
     Dosage: 100 MG 2X PER 1 DAY;   LONG TIME
     Route: 048
     Dates: end: 20040101
  4. MODIODAL (MODAFINIL, , 0) [Suspect]
     Dosage: 100 MG 2X PER 1 DAY;   LONG TIME
     Route: 048
     Dates: start: 20040101

REACTIONS (3)
  - ABNORMAL BEHAVIOUR [None]
  - DELIRIUM [None]
  - DRUG INTERACTION [None]
